FAERS Safety Report 21293668 (Version 1)
Quarter: 2022Q3

REPORT INFORMATION
  Report Type: Spontaneous
  Country: CA (occurrence: None)
  Receive Date: 20220905
  Receipt Date: 20220905
  Transmission Date: 20221026
  Serious: Yes (Other)
  Sender: FDA-Public Use
  Company Number: CA-ROCHE-3093558

PATIENT
  Age: 71 Year
  Sex: Female

DRUGS (10)
  1. ACTEMRA [Suspect]
     Active Substance: TOCILIZUMAB
     Indication: Rheumatoid arthritis
     Route: 042
  2. ACTEMRA [Suspect]
     Active Substance: TOCILIZUMAB
     Route: 042
  3. COVID-19 VACCINE NOS [Suspect]
     Active Substance: COVID-19 VACCINE NOS
     Indication: COVID-19 immunisation
     Route: 030
  4. VAXZEVRIA [Suspect]
     Active Substance: AZD-1222
     Indication: COVID-19 immunisation
     Dosage: VIAL CONTAINS 10 DOSES OF 0.5 ML
     Route: 030
  5. TYLENOL [Concomitant]
     Active Substance: ACETAMINOPHEN
  6. ARAVA [Concomitant]
     Active Substance: LEFLUNOMIDE
  7. FOLIC ACID [Concomitant]
     Active Substance: FOLIC ACID
  8. ARTHROTEC [Concomitant]
     Active Substance: DICLOFENAC SODIUM\MISOPROSTOL
  9. PREDNISONE [Concomitant]
     Active Substance: PREDNISONE
  10. METHOTREXATE [Concomitant]
     Active Substance: METHOTREXATE
     Route: 048

REACTIONS (8)
  - Feeding disorder [Unknown]
  - Dizziness [Unknown]
  - Cough [Unknown]
  - Asthenia [Unknown]
  - Headache [Unknown]
  - Morbid thoughts [Unknown]
  - Pyrexia [Unknown]
  - Malaise [Unknown]
